FAERS Safety Report 9139218 (Version 2)
Quarter: 2013Q1

REPORT INFORMATION
  Report Type: Spontaneous
  Country: FR (occurrence: FR)
  Receive Date: 20130305
  Receipt Date: 20130313
  Transmission Date: 20140127
  Serious: No
  Sender: FDA-Public Use
  Company Number: FR-JNJFOC-20130212552

PATIENT
  Age: 89 Year
  Sex: Male

DRUGS (1)
  1. DUROGESIC [Suspect]
     Indication: PAIN
     Dosage: 12.5 UG/HR ONE AND HALF PATCH
     Route: 062
     Dates: start: 20130204, end: 20130304

REACTIONS (2)
  - Drug prescribing error [Unknown]
  - Off label use [Unknown]
